FAERS Safety Report 10201533 (Version 2)
Quarter: 2014Q3

REPORT INFORMATION
  Report Type: Spontaneous
  Country: GB (occurrence: GB)
  Receive Date: 20140528
  Receipt Date: 20140710
  Transmission Date: 20150326
  Serious: Yes (Other)
  Sender: FDA-Public Use
  Company Number: GB-ACTAVISPR-2014-10603

PATIENT
  Age: 50 Year
  Sex: Male

DRUGS (1)
  1. TENPROLIDE [Suspect]
     Active Substance: QUETIAPINE FUMARATE
     Indication: MOOD SWINGS
     Dosage: 50 MG, SINGLE
     Route: 048
     Dates: start: 20130828

REACTIONS (11)
  - Depression [Recovering/Resolving]
  - Myalgia [Recovering/Resolving]
  - Photopsia [Recovering/Resolving]
  - Muscular weakness [Recovering/Resolving]
  - Feeling of despair [Recovering/Resolving]
  - Cold sweat [Recovering/Resolving]
  - Nausea [Recovering/Resolving]
  - Condition aggravated [Recovering/Resolving]
  - Malaise [Recovering/Resolving]
  - Decreased appetite [Recovering/Resolving]
  - Asthenia [Recovering/Resolving]

NARRATIVE: CASE EVENT DATE: 201309
